FAERS Safety Report 10737363 (Version 1)
Quarter: 2015Q1

REPORT INFORMATION
  Report Type: Spontaneous
  Country: US (occurrence: None)
  Receive Date: 20150122
  Receipt Date: 20150122
  Transmission Date: 20150721
  Serious: Yes (Other)
  Sender: FDA-Public Use
  Company Number: 2013V1000122

PATIENT
  Age: 51 Year
  Sex: Female
  Weight: 136.08 kg

DRUGS (3)
  1. LISINOPRIL/ HYDROCHLOROTHIAZIDE [Concomitant]
  2. QSYMIA [Suspect]
     Active Substance: PHENTERMINE HYDROCHLORIDE\TOPIRAMATE
     Indication: WEIGHT DECREASED
     Route: 048
     Dates: start: 20130216, end: 20130217
  3. QSYMIA [Suspect]
     Active Substance: PHENTERMINE HYDROCHLORIDE\TOPIRAMATE
     Indication: WEIGHT DECREASED
     Route: 048
     Dates: start: 20130208, end: 20130215

REACTIONS (4)
  - Blindness transient [None]
  - Intraocular pressure increased [None]
  - Abnormal sensation in eye [None]
  - Eye swelling [None]

NARRATIVE: CASE EVENT DATE: 20130218
